FAERS Safety Report 11127882 (Version 1)
Quarter: 2015Q2

REPORT INFORMATION
  Report Type: Spontaneous
  Country: JP (occurrence: JP)
  Receive Date: 20150521
  Receipt Date: 20150521
  Transmission Date: 20150821
  Serious: Yes (Other)
  Sender: FDA-Public Use
  Company Number: JP-JNJFOC-20150511864

PATIENT
  Age: 58 Year
  Sex: Male

DRUGS (1)
  1. REMICADE [Suspect]
     Active Substance: INFLIXIMAB
     Indication: PUSTULAR PSORIASIS
     Dosage: 2 YEARS PREVIOUSLY
     Route: 042

REACTIONS (2)
  - Sarcoidosis [Unknown]
  - Lung disorder [Recovering/Resolving]
